FAERS Safety Report 4689339-2 (Version None)
Quarter: 2005Q2

REPORT INFORMATION
  Report Type: 
  Country: None (occurrence: None)
  Receive Date: 20050608
  Receipt Date: 20050218
  Transmission Date: 20051028
  Serious: No
  Sender: FDA-Public Use
  Company Number: 2005-BP-02803BP

PATIENT
  Sex: Female

DRUGS (14)
  1. SPIRIVA [Suspect]
     Indication: CHRONIC OBSTRUCTIVE PULMONARY DISEASE
     Dosage: 18 MCG (18 MCG, QD), IH
     Route: 055
     Dates: start: 20040701
  2. SPIRIVA [Suspect]
     Indication: CHRONIC OBSTRUCTIVE PULMONARY DISEASE
     Dosage: 18 MCG (18 MCG, QD), IH
     Route: 055
     Dates: start: 20040701
  3. ALBUTEROL [Concomitant]
  4. ADVAIR DISKUS 100/50 [Concomitant]
  5. HUMIBID (GUAIFENESIN) [Concomitant]
  6. GLUCOSAMINE (GLUCOSAMINE) [Concomitant]
  7. ZETIA [Concomitant]
  8. LESCOL [Concomitant]
  9. MULTIVITAMIN [Concomitant]
  10. MUCELIX [Concomitant]
  11. ACTONEL [Concomitant]
  12. RANITIDINE [Concomitant]
  13. ASPIRIN [Concomitant]
  14. BUSPIRONE HCL [Concomitant]

REACTIONS (5)
  - BLOOD CHOLESTEROL DECREASED [None]
  - BLOOD TRIGLYCERIDES DECREASED [None]
  - DRY MOUTH [None]
  - HIGH DENSITY LIPOPROTEIN INCREASED [None]
  - PRODUCTIVE COUGH [None]
